FAERS Safety Report 10683606 (Version 1)
Quarter: 2014Q4

REPORT INFORMATION
  Report Type: Spontaneous
  Country: FR (occurrence: FR)
  Receive Date: 20141230
  Receipt Date: 20141230
  Transmission Date: 20150529
  Serious: Yes (Hospitalization)
  Sender: FDA-Public Use
  Company Number: FR-NOVOPROD-434010

PATIENT
  Age: 80 Year
  Sex: Male

DRUGS (22)
  1. NOVONORM [Suspect]
     Active Substance: REPAGLINIDE
     Dosage: 1 DF, TID (EACH MEAL)
     Route: 048
     Dates: start: 20141019
  2. PREVISCAN                          /00261401/ [Concomitant]
     Active Substance: PENTOXIFYLLINE
     Dosage: ONE DF IN DAY1 THEN 3/4 DF DAY 2 AND ADAPT THE DOSE ACCORDING TO INR
     Dates: start: 20141027
  3. NEOMERCAZOLE [Concomitant]
     Active Substance: CARBIMAZOLE
     Dosage: 2 DF, QD (MORNING)
  4. NOVONORM [Suspect]
     Active Substance: REPAGLINIDE
     Dosage: 6 MG, QD
     Route: 048
     Dates: start: 20141027
  5. LANTUS [Suspect]
     Active Substance: INSULIN GLARGINE
     Dosage: 20 IU, QD
     Route: 058
     Dates: start: 20141027
  6. JANUMET [Suspect]
     Active Substance: METFORMIN HYDROCHLORIDE\SITAGLIPTIN PHOSPHATE
     Indication: PRODUCT USED FOR UNKNOWN INDICATION
     Dosage: 1 DF, QD
     Route: 048
     Dates: end: 20141018
  7. COVERSYL                           /00790702/ [Concomitant]
     Active Substance: PERINDOPRIL
     Dosage: 1 DF, BID
  8. COVERSYL                           /00790702/ [Concomitant]
     Active Substance: PERINDOPRIL
     Dosage: 1 DF, QD (MORNING)
     Dates: start: 20141027
  9. MODOPAR [Concomitant]
     Active Substance: BENSERAZIDE HYDROCHLORIDE\LEVODOPA
     Dosage: NE DF IN MORNING, AT NOON AND IN EVENING AT 10:00 PM
     Dates: start: 20141027
  10. SPIRONOLACTONE. [Concomitant]
     Active Substance: SPIRONOLACTONE
     Dosage: 1 DF, QD
  11. NOVONORM [Suspect]
     Active Substance: REPAGLINIDE
     Indication: TYPE 2 DIABETES MELLITUS
     Dosage: 6 MG, QD
     Route: 048
     Dates: end: 20141018
  12. LANTUS [Suspect]
     Active Substance: INSULIN GLARGINE
     Indication: PRODUCT USED FOR UNKNOWN INDICATION
     Dosage: 18 IU, QD
     Route: 058
     Dates: end: 20141016
  13. LANTUS [Suspect]
     Active Substance: INSULIN GLARGINE
     Dosage: 18 IU, QD (EVENING)
     Route: 058
     Dates: start: 20141021
  14. LASILIX                            /00032601/ [Concomitant]
     Active Substance: FUROSEMIDE
     Dosage: 250 MG, QD
  15. PREVISCAN                          /00261401/ [Concomitant]
     Active Substance: PENTOXIFYLLINE
     Dosage: 1 DF, QD
  16. CARVEDILOL. [Concomitant]
     Active Substance: CARVEDILOL
     Dosage: 1 DF, BID
  17. MODOPAR [Concomitant]
     Active Substance: BENSERAZIDE HYDROCHLORIDE\LEVODOPA
     Dosage: 4 DF, QD
  18. LASILIX                            /00032601/ [Concomitant]
     Active Substance: FUROSEMIDE
     Dosage: 250 MG, QD (MORNING)
     Dates: start: 20141027
  19. TAHOR [Concomitant]
     Active Substance: ATORVASTATIN CALCIUM
     Dosage: 1 DF, QD (EVENING)
  20. AMLODIPINE [Concomitant]
     Active Substance: AMLODIPINE BESYLATE
     Dosage: 1 DF, QD
  21. OMEPRAZOLE. [Concomitant]
     Active Substance: OMEPRAZOLE
     Dosage: 1 DF, QD
  22. AMLODIPINE [Concomitant]
     Active Substance: AMLODIPINE BESYLATE
     Dosage: 1 DF, QD (MORNING)
     Dates: start: 20141027

REACTIONS (2)
  - Drug interaction [Recovered/Resolved]
  - Hypoglycaemia [Recovered/Resolved]

NARRATIVE: CASE EVENT DATE: 201410
